FAERS Safety Report 6126322-4 (Version None)
Quarter: 2009Q1

REPORT INFORMATION
  Report Type: 
  Country: None (occurrence: None)
  Receive Date: 20090320
  Receipt Date: 20090311
  Transmission Date: 20090719
  Serious: Yes (Death, Hospitalization)
  Sender: FDA-Public Use
  Company Number: IT-ROCHE-621374

PATIENT
  Age: 80 Year
  Sex: Female

DRUGS (3)
  1. ALL-TRANS-RETINOIC ACID [Suspect]
     Route: 065
  2. HYDROXYUREA [Suspect]
     Dosage: DOSE: 2 GRAM/M2; RECEIVED ON DAYS 1 TO 7
     Route: 065
  3. IDARUBICIN HCL [Suspect]
     Dosage: RECEIVED ON DAYS 2 AND 4
     Route: 065

REACTIONS (5)
  - DEATH [None]
  - MYOCARDIAL ISCHAEMIA [None]
  - PANCYTOPENIA [None]
  - RENAL IMPAIRMENT [None]
  - RETINOIC ACID SYNDROME [None]
